FAERS Safety Report 22844363 (Version 5)
Quarter: 2023Q4

REPORT INFORMATION
  Report Type: Spontaneous
  Country: MX (occurrence: MX)
  Receive Date: 20230821
  Receipt Date: 20231220
  Transmission Date: 20240110
  Serious: Yes (Hospitalization, Other)
  Sender: FDA-Public Use
  Company Number: MX-OEPI8P-1057

PATIENT

DRUGS (7)
  1. NERLYNX [Suspect]
     Active Substance: NERATINIB
     Indication: Breast cancer
     Dosage: EXPIRY DATE: MAY 2024. THE INITIAL DOSE WAS 3 TABLETS (WHICH SHE TOOK FOR A MONTH, SHE DOES NOT REME
     Route: 048
     Dates: start: 20230418
  2. NERLYNX [Suspect]
     Active Substance: NERATINIB
     Dosage: THERAPY ONGOING. EXPIRY DATE: MAY 2024. THE PATIENT IS CURRENTLY TAKING 4 TABLETS PER DAY. ON 08. JU
     Route: 048
     Dates: start: 202305, end: 20230703
  3. NERLYNX [Suspect]
     Active Substance: NERATINIB
     Dosage: ON 04. SEP 2023 THE PATIENT PROVIDED THE FOLLOWING DATES OF SUSPENSION: 4-16 JULY; SHE RESUMED TREAT
     Route: 048
     Dates: start: 20230717, end: 20231009
  4. NERLYNX [Suspect]
     Active Substance: NERATINIB
     Dosage: EXPIRY DATE: 05-2024. THERAPY ONGOING. ALTHOUGH SHE WAS PRESCRIBED 6 PILLS, SHE MENTIONED THAT THEY
     Route: 048
     Dates: start: 20231128
  5. ONDANSETRON [Concomitant]
     Active Substance: ONDANSETRON
     Indication: Product used for unknown indication
     Dosage: UNK
  6. LOPERAMIDE [Concomitant]
     Active Substance: LOPERAMIDE
     Indication: Product used for unknown indication
     Dosage: INITIAL DOSE OF 2 MG EVERY 8 HOURS
  7. LOPERAMIDE [Concomitant]
     Active Substance: LOPERAMIDE
     Dosage: CURRENTLY TAKING 1 TABLET OF 2 MG EVERY 24 HOURS

REACTIONS (16)
  - Nausea [Recovered/Resolved]
  - Gastric pH decreased [Recovered/Resolved]
  - Flatulence [Recovered/Resolved]
  - Diarrhoea [Recovered/Resolved]
  - Cholecystitis acute [Recovered/Resolved]
  - Vomiting [Recovered/Resolved]
  - Eructation [Recovered/Resolved]
  - Off label use [Unknown]
  - Diarrhoea [Recovered/Resolved]
  - Cholecystitis [Not Recovered/Not Resolved]
  - Malaise [Not Recovered/Not Resolved]
  - Diarrhoea [Recovered/Resolved]
  - Abdominal distension [Recovered/Resolved]
  - Dysgeusia [Recovered/Resolved]
  - Nausea [Recovered/Resolved]
  - Diarrhoea [Recovering/Resolving]

NARRATIVE: CASE EVENT DATE: 20230401
